FAERS Safety Report 4405585-7 (Version None)
Quarter: 2004Q3

REPORT INFORMATION
  Report Type: 
  Country: None (occurrence: None)
  Receive Date: 20040723
  Receipt Date: 20031007
  Transmission Date: 20050211
  Serious: Yes (Hospitalization)
  Sender: FDA-Public Use
  Company Number: US-GLAXOSMITHKLINE-A0429261A

PATIENT
  Age: 54 Year
  Sex: Male

DRUGS (1)
  1. AVANDIA [Suspect]
     Dosage: 8MG PER DAY
     Route: 048
     Dates: start: 19990101, end: 20020101

REACTIONS (4)
  - CARDIAC FAILURE CONGESTIVE [None]
  - DYSPNOEA [None]
  - PULMONARY OEDEMA [None]
  - WEIGHT INCREASED [None]
